FAERS Safety Report 5644711-9 (Version None)
Quarter: 2008Q1

REPORT INFORMATION
  Report Type: 
  Country: None (occurrence: None)
  Receive Date: 20080229
  Receipt Date: 20070612
  Transmission Date: 20080703
  Serious: No
  Sender: FDA-Public Use
  Company Number: A0655314A

PATIENT
  Age: 49 Year
  Sex: Female

DRUGS (2)
  1. VALTREX [Suspect]
     Dosage: 1000MG PER DAY
     Route: 048
     Dates: start: 19990101
  2. WELLBUTRIN [Concomitant]

REACTIONS (2)
  - PHARMACEUTICAL PRODUCT COMPLAINT [None]
  - THERAPEUTIC RESPONSE UNEXPECTED [None]
